FAERS Safety Report 6954580-2 (Version None)
Quarter: 2010Q3

REPORT INFORMATION
  Report Type: 
  Country: None (occurrence: None)
  Receive Date: 20100829
  Receipt Date: 20100720
  Transmission Date: 20110219
  Serious: No
  Sender: FDA-Public Use
  Company Number: US-ABBOTT-10P-163-0659335-00

PATIENT
  Sex: Male

DRUGS (4)
  1. NIASPAN [Suspect]
     Indication: BLOOD CHOLESTEROL INCREASED
     Dates: start: 20090801
  2. CRESTOR [Concomitant]
     Indication: BLOOD CHOLESTEROL INCREASED
     Dates: start: 20080101
  3. BENICAR [Concomitant]
     Indication: HYPERTENSION
     Dates: start: 20080101
  4. TOPROL-XL [Concomitant]
     Indication: HYPERTENSION
     Dates: start: 20080101

REACTIONS (2)
  - FLUSHING [None]
  - PRURITUS [None]
